FAERS Safety Report 20114156 (Version 1)
Quarter: 2021Q4

REPORT INFORMATION
  Report Type: Report from Study
  Country: ES (occurrence: ES)
  Receive Date: 20211125
  Receipt Date: 20211125
  Transmission Date: 20220304
  Serious: Yes (Death, Hospitalization)
  Sender: FDA-Public Use
  Company Number: ES-TEVA-2021-ES-1979945

PATIENT
  Age: 38 Year
  Sex: Female

DRUGS (5)
  1. FLUDARABINE [Suspect]
     Active Substance: FLUDARABINE PHOSPHATE
     Indication: Bone marrow conditioning regimen
     Dosage: 40 MG/M2 DAILY; SCHEDULED TO RECEIVE ON DAYS -6 TO -3
     Route: 065
  2. MYCOPHENOLATE MOFETIL [Suspect]
     Active Substance: MYCOPHENOLATE MOFETIL
     Indication: Bone marrow conditioning regimen
     Route: 065
  3. BUSULFAN [Suspect]
     Active Substance: BUSULFAN
     Indication: Bone marrow conditioning regimen
     Dosage: 3.2 MG/KG DAILY; SCHEDULED TO RECEIVE ON DAYS -6 TO -3
     Route: 042
  4. RITUXIMAB [Suspect]
     Active Substance: RITUXIMAB
     Indication: Bone marrow conditioning regimen
     Dosage: 53.5714 MG/M2 DAILY; SIX DOSES ADMINISTERED WEEKLY STARTING FROM DAY -35
     Route: 065
  5. Immunoglobulin [Concomitant]
     Indication: Bone marrow conditioning regimen
     Dosage: .4 MG/KG DAILY;
     Route: 042

REACTIONS (2)
  - Venoocclusive liver disease [Fatal]
  - Intracranial pressure increased [Fatal]
